FAERS Safety Report 9062964 (Version 1)
Quarter: 2013Q1

REPORT INFORMATION
  Report Type: Report from Study
  Country: US (occurrence: US)
  Receive Date: 20130131
  Receipt Date: 20130131
  Transmission Date: 20140127
  Serious: No
  Sender: FDA-Public Use
  Company Number: US-ABBOTT-12P-163-1009603-00

PATIENT
  Sex: Female
  Weight: 92.62 kg

DRUGS (5)
  1. HUMIRA [Suspect]
     Indication: RHEUMATOID ARTHRITIS
     Dates: start: 20120830, end: 201210
  2. HUMIRA [Suspect]
     Dates: start: 201211
  3. CITALOPRAM [Concomitant]
     Indication: ANXIETY
     Dates: start: 2008
  4. METOPROLOL [Concomitant]
     Indication: TACHYCARDIA
     Dates: start: 2009
  5. METOPROLOL [Concomitant]
     Indication: BLOOD PRESSURE

REACTIONS (3)
  - Upper respiratory tract infection [Recovered/Resolved]
  - Sinusitis [Recovered/Resolved]
  - Upper-airway cough syndrome [Not Recovered/Not Resolved]
